FAERS Safety Report 16813390 (Version 1)
Quarter: 2019Q3

REPORT INFORMATION
  Report Type: Spontaneous
  Country: GB (occurrence: GB)
  Receive Date: 20190917
  Receipt Date: 20190917
  Transmission Date: 20191005
  Serious: Yes (Hospitalization)
  Sender: FDA-Public Use
  Company Number: GB-ALKEM LABORATORIES LIMITED-GB-ALKEM-2019-07680

PATIENT
  Age: 55 Year
  Sex: Female

DRUGS (7)
  1. SOLIFENACIN [Suspect]
     Active Substance: SOLIFENACIN
     Indication: PRODUCT USED FOR UNKNOWN INDICATION
     Dosage: 5 MILLIGRAM, OD
     Route: 048
     Dates: start: 20180620, end: 20190409
  2. SOLIFENACIN [Suspect]
     Active Substance: SOLIFENACIN
     Dosage: 10 MG, QD
     Route: 048
     Dates: start: 20190409, end: 20190607
  3. FERROUS SULFATE. [Concomitant]
     Active Substance: FERROUS SULFATE
     Indication: PRODUCT USED FOR UNKNOWN INDICATION
     Dosage: 200 MG, QD
     Route: 048
     Dates: start: 20100521
  4. TOLVAPTAN [Suspect]
     Active Substance: TOLVAPTAN
     Dosage: 45 MILLIGRAM, QD
     Route: 048
     Dates: start: 20171221, end: 20190607
  5. AZATHIOPRINE. [Concomitant]
     Active Substance: AZATHIOPRINE
     Indication: PRODUCT USED FOR UNKNOWN INDICATION
     Dosage: 125 MG, QD
     Route: 048
     Dates: start: 20090130
  6. SOLIFENACIN [Suspect]
     Active Substance: SOLIFENACIN
     Dosage: 5 MILLIGRAM, OD
     Route: 048
     Dates: start: 20190607
  7. TOLVAPTAN [Suspect]
     Active Substance: TOLVAPTAN
     Indication: CONGENITAL CYSTIC KIDNEY DISEASE
     Dosage: 15 MG, QD (IN THE EVENING)
     Route: 048
     Dates: start: 20171221, end: 20190607

REACTIONS (1)
  - Hyperkalaemia [Recovered/Resolved]

NARRATIVE: CASE EVENT DATE: 20190607
